FAERS Safety Report 10437269 (Version 2)
Quarter: 2014Q3

REPORT INFORMATION
  Report Type: Spontaneous
  Country: US (occurrence: US)
  Receive Date: 20140908
  Receipt Date: 20140908
  Transmission Date: 20150326
  Serious: No
  Sender: FDA-Public Use
  Company Number: US-BRISTOL-MYERS SQUIBB COMPANY-19620152

PATIENT
  Age: 62 Year
  Sex: Male

DRUGS (4)
  1. ZOLOFT [Suspect]
     Active Substance: SERTRALINE HYDROCHLORIDE
     Indication: DEPRESSION
     Dosage: INITIAL DOSE 200 MG.
     Route: 048
     Dates: start: 201308, end: 20131108
  2. ABILIFY [Suspect]
     Active Substance: ARIPIPRAZOLE
     Indication: DEPRESSION
     Dosage: INITIAL DOSE 10 MG.
     Route: 048
     Dates: start: 20111114, end: 201308
  3. WELLBUTRIN XL [Suspect]
     Active Substance: BUPROPION HYDROCHLORIDE
     Route: 048
     Dates: start: 20130703, end: 20131108
  4. BUSPIRONE HCL [Suspect]
     Active Substance: BUSPIRONE HYDROCHLORIDE
     Route: 048
     Dates: start: 20120822, end: 201309

REACTIONS (3)
  - Dyskinesia [Unknown]
  - Tongue blistering [Unknown]
  - Glossitis [Unknown]

NARRATIVE: CASE EVENT DATE: 201309
